FAERS Safety Report 14439247 (Version 3)
Quarter: 2018Q1

REPORT INFORMATION
  Report Type: Report from Study
  Country: ES (occurrence: ES)
  Receive Date: 20180125
  Receipt Date: 20180301
  Transmission Date: 20180509
  Serious: Yes (Hospitalization)
  Sender: FDA-Public Use
  Company Number: ES-PFIZER INC-2018027409

PATIENT
  Age: 2 Year
  Sex: Male
  Weight: 13.5 kg

DRUGS (7)
  1. OMEPRAZOL [Concomitant]
     Active Substance: OMEPRAZOLE
     Indication: PROPHYLAXIS
     Dosage: 20 MG, DAILY (EVERY 24 HOURS)
     Route: 048
     Dates: start: 20170712, end: 20170730
  2. SEPTRIN PAEDIATRIC [Concomitant]
     Indication: PROPHYLAXIS
     Dosage: 4 ML, 2X/DAY (EVERY 12 HOURS)
     Route: 048
     Dates: start: 20161201
  3. DOXORUBICIN HCL [Suspect]
     Active Substance: DOXORUBICIN HYDROCHLORIDE
     Indication: ACUTE LYMPHOCYTIC LEUKAEMIA
     Dosage: 34 MG, SINGLE
     Route: 042
     Dates: start: 20170712, end: 20170719
  4. FORTECORTIN /00016001/ [Suspect]
     Active Substance: DEXAMETHASONE
     Indication: ACUTE LYMPHOCYTIC LEUKAEMIA
     Dosage: 3 MG, 2X/DAY (EVERY 12 HOURS)
     Route: 048
     Dates: start: 20170712, end: 20170801
  5. ACICLOVIR [Concomitant]
     Active Substance: ACYCLOVIR
     Indication: PROPHYLAXIS
     Dosage: 136 MG, 3X/DAY (EVERY 8 HOURS)
     Route: 048
     Dates: start: 20161201
  6. VINCRISTINE SULFATE. [Suspect]
     Active Substance: VINCRISTINE SULFATE
     Indication: ACUTE LYMPHOCYTIC LEUKAEMIA
     Dosage: 1.7 MG, SINGLE
     Route: 042
     Dates: start: 20170712, end: 20170719
  7. ERWINASE /00143501/ [Suspect]
     Active Substance: ASPARAGINASE
     Indication: ACUTE LYMPHOCYTIC LEUKAEMIA
     Dosage: 34.2 KIU, SINGLE
     Route: 030
     Dates: start: 20170712, end: 20170716

REACTIONS (3)
  - Gastroenteritis adenovirus [Recovered/Resolved]
  - Pharyngotonsillitis [Recovered/Resolved]
  - Febrile neutropenia [Recovered/Resolved]

NARRATIVE: CASE EVENT DATE: 20170724
